FAERS Safety Report 10789120 (Version 1)
Quarter: 2015Q1

REPORT INFORMATION
  Report Type: Spontaneous
  Country: DK (occurrence: DK)
  Receive Date: 20150212
  Receipt Date: 20150212
  Transmission Date: 20150721
  Serious: Yes (Disabling)
  Sender: FDA-Public Use
  Company Number: DK-NOVOPROD-349713

PATIENT
  Age: 53 Year
  Sex: Female
  Weight: 76.7 kg

DRUGS (3)
  1. VAGIFEM [Suspect]
     Active Substance: ESTRADIOL
     Indication: MENOPAUSAL DISORDER
     Dosage: UNK ?G, BIW
     Route: 065
     Dates: start: 200906
  2. VAGIFEM [Suspect]
     Active Substance: ESTRADIOL
     Indication: PRODUCT USED FOR UNKNOWN INDICATION
     Dosage: 25 ?G, UNK
     Route: 067
     Dates: start: 2011, end: 20140901
  3. MOVICOL [Concomitant]
     Active Substance: POLYETHYLENE GLYCOL 3350\POTASSIUM CHLORIDE\SODIUM BICARBONATE\SODIUM CHLORIDE
     Indication: CONSTIPATION

REACTIONS (8)
  - Feeling abnormal [Unknown]
  - Weight decreased [Unknown]
  - Muscle atrophy [Unknown]
  - Oedema peripheral [Unknown]
  - Burning sensation [Unknown]
  - Contusion [Unknown]
  - Erythema [Unknown]
  - Migraine [Recovered/Resolved]

NARRATIVE: CASE EVENT DATE: 201104
